FAERS Safety Report 24564919 (Version 1)
Quarter: 2024Q4

REPORT INFORMATION
  Report Type: Spontaneous
  Country: US (occurrence: US)
  Receive Date: 20241030
  Receipt Date: 20241030
  Transmission Date: 20250115
  Serious: Yes (Other)
  Sender: PFIZER
  Company Number: US-PFIZER INC-202400288851

PATIENT

DRUGS (1)
  1. RITLECITINIB [Suspect]
     Active Substance: RITLECITINIB
     Indication: Alopecia areata
     Dosage: 50 MG

REACTIONS (4)
  - Autism spectrum disorder [Unknown]
  - Condition aggravated [Unknown]
  - Headache [Unknown]
  - Diarrhoea [Unknown]
